FAERS Safety Report 10927757 (Version 1)
Quarter: 2015Q1

REPORT INFORMATION
  Report Type: Spontaneous
  Country: JP (occurrence: JP)
  Receive Date: 20150319
  Receipt Date: 20150319
  Transmission Date: 20150721
  Serious: Yes (Death, Hospitalization)
  Sender: FDA-Public Use
  Company Number: PHHY2015JP029535

PATIENT
  Age: 11 Year
  Sex: Male

DRUGS (16)
  1. LISINOPRIL. [Suspect]
     Active Substance: LISINOPRIL
     Indication: LEFT VENTRICULAR DYSFUNCTION
     Route: 065
  2. CARVEDILOL. [Suspect]
     Active Substance: CARVEDILOL
     Indication: CARDIAC FAILURE CONGESTIVE
     Dosage: 0.625 MG, UNK
     Route: 065
  3. TOLVAPTAN [Concomitant]
     Active Substance: TOLVAPTAN
     Indication: CARDIOMYOPATHY
     Dosage: 3.75-30 MG
     Route: 065
  4. DOPAMINE [Concomitant]
     Active Substance: DOPAMINE\DOPAMINE HYDROCHLORIDE
     Indication: CARDIOMYOPATHY
     Route: 065
  5. DOPAMINE [Concomitant]
     Active Substance: DOPAMINE\DOPAMINE HYDROCHLORIDE
     Indication: CONDITION AGGRAVATED
  6. TOLVAPTAN [Concomitant]
     Active Substance: TOLVAPTAN
     Indication: CONDITION AGGRAVATED
  7. OXYGEN. [Concomitant]
     Active Substance: OXYGEN
     Indication: INHALATION THERAPY
     Dosage: 1-5 L
     Route: 065
  8. FUROSEMIDE. [Suspect]
     Active Substance: FUROSEMIDE
     Dosage: 10 MG, UNK
     Route: 048
  9. LANDIOLOL [Suspect]
     Active Substance: LANDIOLOL
     Indication: VENTRICULAR TACHYCARDIA
     Dosage: 50 MG, UNK
     Route: 065
  10. AMIODARONE [Suspect]
     Active Substance: AMIODARONE
     Indication: TORSADE DE POINTES
  11. LISINOPRIL. [Suspect]
     Active Substance: LISINOPRIL
     Indication: EJECTION FRACTION DECREASED
  12. AMIODARONE [Suspect]
     Active Substance: AMIODARONE
     Indication: VENTRICULAR TACHYCARDIA
     Dosage: 150 MG, UNK
     Route: 065
  13. FUROSEMIDE. [Suspect]
     Active Substance: FUROSEMIDE
     Indication: CARDIAC FAILURE CONGESTIVE
     Dosage: 20 MG, UNK
     Route: 042
  14. LOSARTAN [Suspect]
     Active Substance: LOSARTAN
     Indication: CARDIAC FAILURE CONGESTIVE
     Dosage: 5-12.5 MG
     Route: 065
  15. SPIRONOLACTON [Suspect]
     Active Substance: SPIRONOLACTONE
     Indication: PRODUCT USED FOR UNKNOWN INDICATION
     Dosage: 25-50 MG
     Route: 065
  16. DOBUTAMINE [Suspect]
     Active Substance: DOBUTAMINE\DOBUTAMINE HYDROCHLORIDE
     Indication: CARDIAC FAILURE CONGESTIVE
     Route: 065

REACTIONS (4)
  - Cardiac failure congestive [Fatal]
  - Drug ineffective [Unknown]
  - Discomfort [Unknown]
  - Hepatic function abnormal [Unknown]
